FAERS Safety Report 6867320-2 (Version None)
Quarter: 2010Q3

REPORT INFORMATION
  Report Type: 
  Country: None (occurrence: None)
  Receive Date: 20100722
  Receipt Date: 20100715
  Transmission Date: 20110219
  Serious: Yes (Life-Threatening)
  Sender: FDA-Public Use
  Company Number: JP-MERCK-1006USA01729

PATIENT
  Age: 58 Year
  Sex: Male
  Weight: 74 kg

DRUGS (4)
  1. HYZAAR [Suspect]
     Indication: HYPERTENSION
     Route: 048
     Dates: start: 20090610, end: 20090613
  2. HYZAAR [Suspect]
     Route: 048
     Dates: start: 20090615, end: 20090705
  3. ATELEC [Concomitant]
     Route: 048
     Dates: start: 20100427, end: 20100609
  4. FLUITRAN [Concomitant]
     Route: 048
     Dates: start: 20100427, end: 20100609

REACTIONS (1)
  - SHOCK [None]
